FAERS Safety Report 7315854-9 (Version None)
Quarter: 2011Q1

REPORT INFORMATION
  Report Type: 
  Country: None (occurrence: None)
  Receive Date: 20110119
  Receipt Date: 20100528
  Transmission Date: 20110831
  Serious: No
  Sender: FDA-Public Use
  Company Number: A-NJ2010-35734

PATIENT
  Age: 73 Year
  Sex: Female

DRUGS (4)
  1. TRACLEER [Suspect]
     Indication: PULMONARY ARTERIAL HYPERTENSION
     Dosage: 125 MG, BID, 62.5 MG, BID, ORAL, 125 MG, BID, ORAL, 125 MG, QD, ORAL
     Route: 048
     Dates: start: 20090319, end: 20090418
  2. TRACLEER [Suspect]
     Indication: PULMONARY ARTERIAL HYPERTENSION
     Dosage: 125 MG, BID, 62.5 MG, BID, ORAL, 125 MG, BID, ORAL, 125 MG, QD, ORAL
     Route: 048
     Dates: end: 20100503
  3. TRACLEER [Suspect]
     Indication: PULMONARY ARTERIAL HYPERTENSION
     Dosage: 125 MG, BID, 62.5 MG, BID, ORAL, 125 MG, BID, ORAL, 125 MG, QD, ORAL
     Route: 048
     Dates: start: 20090419
  4. TRACLEER [Suspect]
     Indication: PULMONARY ARTERIAL HYPERTENSION
     Dosage: 125 MG, BID, 62.5 MG, BID, ORAL, 125 MG, BID, ORAL, 125 MG, QD, ORAL
     Route: 048
     Dates: start: 20100504

REACTIONS (1)
  - LIVER FUNCTION TEST ABNORMAL [None]
